FAERS Safety Report 25482617 (Version 1)
Quarter: 2025Q2

REPORT INFORMATION
  Report Type: Spontaneous
  Country: DE (occurrence: DE)
  Receive Date: 20250626
  Receipt Date: 20250626
  Transmission Date: 20250717
  Serious: Yes (Hospitalization)
  Sender: DAIICHI
  Company Number: None

PATIENT
  Age: 79 Year
  Sex: Female
  Weight: 60 kg

DRUGS (2)
  1. EDOXABAN [Suspect]
     Active Substance: EDOXABAN
     Indication: Atrial fibrillation
     Route: 048
     Dates: start: 20220510, end: 20250609
  2. EDOXABAN [Suspect]
     Active Substance: EDOXABAN
     Indication: Cerebrovascular accident

REACTIONS (1)
  - Night sweats [Recovering/Resolving]

NARRATIVE: CASE EVENT DATE: 20240601
